FAERS Safety Report 8539263-X (Version None)
Quarter: 2012Q3

REPORT INFORMATION
  Report Type: 
  Country: None (occurrence: None)
  Receive Date: 20120726
  Receipt Date: 20120716
  Transmission Date: 20120928
  Serious: Yes (Other)
  Sender: FDA-Public Use
  Company Number: SE-JNJFOC-20120707378

PATIENT
  Sex: Male

DRUGS (1)
  1. PALIPERIDONE [Suspect]
     Indication: PSYCHOTIC DISORDER
     Dosage: START DATE 19TH JUNE
     Route: 030

REACTIONS (3)
  - UNRESPONSIVE TO STIMULI [None]
  - PSYCHOTIC DISORDER [None]
  - DRUG DOSE OMISSION [None]
